FAERS Safety Report 4930253-2 (Version None)
Quarter: 2006Q1

REPORT INFORMATION
  Report Type: 
  Country: None (occurrence: None)
  Receive Date: 20060228
  Receipt Date: 20060220
  Transmission Date: 20060701
  Serious: Yes (Other)
  Sender: FDA-Public Use
  Company Number: 163-21880-06020526

PATIENT

DRUGS (1)
  1. REVLIMID [Suspect]
     Dosage: 10 MG, DAILY, ORAL
     Route: 048

REACTIONS (2)
  - DYSPNOEA [None]
  - VISION BLURRED [None]
